FAERS Safety Report 14305827 (Version 1)
Quarter: 2017Q4

REPORT INFORMATION
  Report Type: Spontaneous
  Country: GB (occurrence: GB)
  Receive Date: 20171219
  Receipt Date: 20171219
  Transmission Date: 20180321
  Serious: Yes (Death, Congenital Anomaly)
  Sender: FDA-Public Use
  Company Number: GB-ABBVIE-17P-167-2197315-00

PATIENT
  Age: 4 Week
  Sex: Female

DRUGS (1)
  1. VALPROATE SODIUM. [Suspect]
     Active Substance: VALPROATE SODIUM
     Indication: MATERNAL EXPOSURE TIMING UNSPECIFIED
     Route: 064

REACTIONS (10)
  - Intestinal obstruction [Fatal]
  - Spina bifida [Fatal]
  - Cleft palate [Fatal]
  - Premature baby [Fatal]
  - Heart disease congenital [Fatal]
  - Dysmorphism [Fatal]
  - Death [Fatal]
  - Epilepsy [Fatal]
  - Haemorrhage intracranial [Fatal]
  - Foetal exposure during pregnancy [Unknown]
